FAERS Safety Report 5307409-2 (Version None)
Quarter: 2007Q2

REPORT INFORMATION
  Report Type: 
  Country: None (occurrence: None)
  Receive Date: 20070425
  Receipt Date: 20070423
  Transmission Date: 20071010
  Serious: Yes (Other)
  Sender: FDA-Public Use
  Company Number: SA-BRISTOL-MYERS SQUIBB COMPANY-13680806

PATIENT
  Age: 43 Year
  Sex: Male

DRUGS (7)
  1. AMPHOTERICIN B [Suspect]
     Indication: SEPTIC SHOCK
     Dates: start: 19930828
  2. AMIKACIN SULFATE [Suspect]
     Indication: PNEUMONIA
     Dates: start: 19930801
  3. CEFTAZIDIME [Suspect]
     Indication: PNEUMONIA
     Dates: start: 19930801
  4. TEICOPLANIN [Suspect]
     Indication: PNEUMONIA
     Dates: start: 19930801
  5. IMIPENEM [Suspect]
     Indication: PNEUMONIA
     Dates: start: 19930801
  6. IDARUBICIN HCL [Concomitant]
     Indication: ACUTE MYELOID LEUKAEMIA
     Dates: start: 19930801
  7. CYTOSINE ARABINOSIDE [Concomitant]
     Indication: ACUTE MYELOID LEUKAEMIA
     Dates: start: 19930801

REACTIONS (4)
  - HYPERNATRAEMIA [None]
  - HYPOKALAEMIA [None]
  - NEPHROGENIC DIABETES INSIPIDUS [None]
  - SEPTIC SHOCK [None]
